FAERS Safety Report 20203320 (Version 1)
Quarter: 2021Q4

REPORT INFORMATION
  Report Type: Report from Study
  Country: EG (occurrence: EG)
  Receive Date: 20211218
  Receipt Date: 20211218
  Transmission Date: 20220303
  Serious: Yes (Other)
  Sender: FDA-Public Use
  Company Number: EG-NOVARTISPH-NVSC2021EG286362

PATIENT
  Age: 76 Year
  Sex: Male

DRUGS (12)
  1. ENTRESTO [Suspect]
     Active Substance: SACUBITRIL\VALSARTAN
     Indication: Cardiac failure
     Dosage: 100 MG (HALF TABLET TWICE DAILY)
     Route: 048
     Dates: start: 20211122
  2. BISOPROLOL FUMARATE [Concomitant]
     Active Substance: BISOPROLOL FUMARATE
     Indication: Angioedema
     Dosage: 1 DOSAGE FORM (ONE TABLET AND HALF DAILY)
     Route: 048
     Dates: start: 20211122
  3. FUROSEMIDE\SPIRONOLACTONE [Concomitant]
     Active Substance: FUROSEMIDE\SPIRONOLACTONE
     Indication: Diuretic therapy
     Dosage: UNK (HALF TABLET DAILY)
     Route: 048
     Dates: start: 20211122
  4. XARELTO [Concomitant]
     Active Substance: RIVAROXABAN
     Indication: Anticoagulant therapy
     Dosage: 1 DOSAGE FORM (ONE TABLET DAILY AFTER DINNER)
     Route: 048
     Dates: start: 20211122
  5. DAPAGLIFLOZIN [Concomitant]
     Active Substance: DAPAGLIFLOZIN
     Indication: Product used for unknown indication
     Dosage: UNK (ONE TABLET DAILY AFTER DINNER)
     Route: 048
     Dates: start: 20211122
  6. ATOREZA [Concomitant]
     Indication: Hyperlipidaemia
     Dosage: 1 DOSAGE FORM (ONE TABLET DAILY AFTER DINNER)
     Route: 048
     Dates: start: 20211122
  7. RABEPRAZOLE SODIUM [Concomitant]
     Active Substance: RABEPRAZOLE SODIUM
     Indication: Gastrooesophageal reflux disease
     Dosage: 1 DOSAGE FORM (ONE TABLET DAILY AFTER LUNCH)
     Route: 048
     Dates: start: 2018
  8. ALLOPURINOL [Concomitant]
     Active Substance: ALLOPURINOL
     Indication: Gout
     Dosage: 1 DOSAGE FORM, QD
     Route: 048
     Dates: start: 2011
  9. MIXTARD HUMAN 70/30 [Concomitant]
     Active Substance: INSULIN HUMAN
     Indication: Diabetes mellitus
     Dosage: UNK (EITHER 20 OR 25 UNITS BEFORE BREAKFAST DEPENDING ON FOOD.)
     Route: 065
     Dates: start: 2011
  10. LANTUS [Concomitant]
     Active Substance: INSULIN GLARGINE
     Indication: Diabetes mellitus
     Dosage: UNK (50 UNIT ONCE DAILY)
     Route: 065
     Dates: start: 200801, end: 20211122
  11. ASPIRIN [Concomitant]
     Active Substance: ASPIRIN
     Indication: Anticoagulant therapy
     Dosage: 1 DOSAGE FORM (100)
     Route: 048
     Dates: start: 20191211, end: 20211122
  12. EXFORGE HCT [Concomitant]
     Active Substance: AMLODIPINE BESYLATE\HYDROCHLOROTHIAZIDE\VALSARTAN
     Indication: Hypertension
     Dosage: UNK ONCE TABLET ONCE DAILY
     Route: 048

REACTIONS (4)
  - Glycosylated haemoglobin increased [Unknown]
  - Insomnia [Not Recovered/Not Resolved]
  - High density lipoprotein decreased [Unknown]
  - Wrong technique in product usage process [Not Recovered/Not Resolved]

NARRATIVE: CASE EVENT DATE: 20211122
